FAERS Safety Report 7432513-2 (Version None)
Quarter: 2011Q2

REPORT INFORMATION
  Report Type: 
  Country: None (occurrence: None)
  Receive Date: 20110422
  Receipt Date: 20110411
  Transmission Date: 20111010
  Serious: No
  Sender: FDA-Public Use
  Company Number: US-B.I. PHARMACEUTICALS,INC./RIDGEFIELD-2011-BP-10552BP

PATIENT
  Sex: Male

DRUGS (6)
  1. DIGOXIN [Concomitant]
     Indication: ATRIAL FIBRILLATION
  2. LASIX [Concomitant]
     Indication: CARDIAC FAILURE
  3. SIMVASTATIN [Concomitant]
     Indication: BLOOD CHOLESTEROL INCREASED
  4. METOPROLOL [Concomitant]
     Indication: HYPERTENSION
  5. TRICOR [Concomitant]
     Indication: BLOOD CHOLESTEROL INCREASED
  6. PRADAXA [Suspect]
     Indication: ATRIAL FIBRILLATION
     Dosage: 300 MG
     Route: 048
     Dates: start: 20110411

REACTIONS (2)
  - ABDOMINAL DISCOMFORT [None]
  - HEART RATE INCREASED [None]
